FAERS Safety Report 22535286 (Version 1)
Quarter: 2023Q2

REPORT INFORMATION
  Report Type: Spontaneous
  Country: IR (occurrence: IR)
  Receive Date: 20230608
  Receipt Date: 20230608
  Transmission Date: 20230722
  Serious: Yes (Hospitalization, Other)
  Sender: FDA-Public Use
  Company Number: IR-QUAGEN-2023QUALIT00145

PATIENT
  Age: 25 Year
  Sex: Male

DRUGS (5)
  1. LIDOCAINE [Suspect]
     Active Substance: LIDOCAINE
     Indication: Genital pain
     Dosage: 70 G/10 G
     Route: 065
  2. LIDOCAINE [Suspect]
     Active Substance: LIDOCAINE
     Indication: Pruritus genital
  3. BENZOCAINE [Suspect]
     Active Substance: BENZOCAINE
     Indication: Genital pain
     Dosage: 60 G/10G
     Route: 065
  4. BENZOCAINE [Suspect]
     Active Substance: BENZOCAINE
     Indication: Pruritus genital
  5. Podophyllin (podophyllum peltatum) [Concomitant]
     Indication: Product used for unknown indication
     Route: 065

REACTIONS (3)
  - Haemolysis [Recovered/Resolved]
  - Methaemoglobinaemia [Recovered/Resolved]
  - Overdose [Unknown]
